FAERS Safety Report 6418955-2 (Version None)
Quarter: 2009Q4

REPORT INFORMATION
  Report Type: 
  Country: None (occurrence: None)
  Receive Date: 20091029
  Receipt Date: 20091019
  Transmission Date: 20100525
  Serious: Yes (Hospitalization)
  Sender: FDA-Public Use
  Company Number: US-JNJFOC-20091007670

PATIENT
  Sex: Female
  Weight: 61 kg

DRUGS (4)
  1. EXTRA STRENGTH TYLENOL [Suspect]
     Indication: PAIN
  2. REBIF [Suspect]
     Indication: MULTIPLE SCLEROSIS
     Route: 058
  3. ALEVE [Concomitant]
     Indication: FIBROMYALGIA
  4. CYMBALTA [Concomitant]
     Indication: PAIN

REACTIONS (3)
  - INCORRECT DOSE ADMINISTERED [None]
  - LIVER FUNCTION TEST ABNORMAL [None]
  - LOSS OF CONSCIOUSNESS [None]
